FAERS Safety Report 4344838-8 (Version None)
Quarter: 2004Q2

REPORT INFORMATION
  Report Type: 
  Country: None (occurrence: None)
  Receive Date: 20040420
  Receipt Date: 20040412
  Transmission Date: 20050107
  Serious: Yes (Hospitalization)
  Sender: FDA-Public Use
  Company Number: CIP04000752

PATIENT
  Age: 73 Year
  Sex: Female
  Weight: 65.3 kg

DRUGS (6)
  1. ACTONEL [Suspect]
     Indication: OSTEOPOROSIS
     Dosage: 35 MG ONE DOSE ; ORAL
     Route: 048
     Dates: start: 20040310, end: 20040310
  2. LEVAQUIN [Suspect]
     Dosage: UNK, UNK, UNK
     Route: 065
  3. SYNTHROID [Concomitant]
  4. ONE-A-DAY (CYANOCOBALAMIN, NICOTINAMIDE, PYRIDOXINE HYDROCHLORIDE, RIB [Concomitant]
  5. PREDNISONE [Concomitant]
  6. VIACTIV [Concomitant]

REACTIONS (15)
  - ANAEMIA [None]
  - AORTIC DISORDER [None]
  - CARDIOMEGALY [None]
  - CHILLS [None]
  - DIARRHOEA [None]
  - FAECAL OCCULT BLOOD POSITIVE [None]
  - HYPOKALAEMIA [None]
  - INFECTION IN AN IMMUNOCOMPROMISED HOST [None]
  - SEPSIS SYNDROME [None]
  - SYSTEMIC INFLAMMATORY RESPONSE SYNDROME [None]
  - TACHYCARDIA [None]
  - THROMBOCYTOPENIA [None]
  - VIRAL INFECTION [None]
  - VOMITING [None]
  - WHITE BLOOD CELL COUNT INCREASED [None]
